FAERS Safety Report 21087048 (Version 1)
Quarter: 2022Q3

REPORT INFORMATION
  Report Type: Spontaneous
  Country: AU (occurrence: AU)
  Receive Date: 20220715
  Receipt Date: 20220715
  Transmission Date: 20221027
  Serious: Yes (Hospitalization)
  Sender: FDA-Public Use
  Company Number: AU-ABBVIE-22K-008-4457381-00

PATIENT
  Age: 26 Year
  Sex: Male
  Weight: 70 kg

DRUGS (1)
  1. VALPROATE SODIUM [Suspect]
     Active Substance: VALPROATE SODIUM
     Indication: Product used for unknown indication
     Dosage: 200 X 500 MG (100 G, 1.4 G/KG)
     Route: 048

REACTIONS (2)
  - Somnolence [Unknown]
  - Overdose [Unknown]
